FAERS Safety Report 6636176-5 (Version None)
Quarter: 2010Q1

REPORT INFORMATION
  Report Type: 
  Country: None (occurrence: None)
  Receive Date: 20100316
  Receipt Date: 20100308
  Transmission Date: 20100710
  Serious: Yes (Death, Life-Threatening, Hospitalization, Disabling, Other)
  Sender: FDA-Public Use
  Company Number: DE-JNJFOC-20100300921

PATIENT
  Sex: Male
  Weight: 93 kg

DRUGS (14)
  1. TRABECTEDIN [Suspect]
     Indication: SARCOMA
     Dosage: 3MG, CYCLE 1
     Route: 042
  2. TRABECTEDIN [Suspect]
     Dosage: 3MG, CYCLE 2
     Route: 042
  3. TRABECTEDIN [Suspect]
     Dosage: 3MG, CYCLE 5
     Route: 042
  4. TRABECTEDIN [Suspect]
     Dosage: 3MG, CYCLE 3
     Route: 042
  5. TRABECTEDIN [Suspect]
     Dosage: 3MG, CYCLE 4
     Route: 042
  6. DOXORUBICIN HCL [Suspect]
     Indication: CHEMOTHERAPY
     Route: 042
  7. ACETYLSALICYLIC ACID SRT [Concomitant]
     Indication: PLATELET AGGREGATION INHIBITION
     Route: 048
  8. CODIOVAN [Concomitant]
     Indication: HYPERTENSION
     Route: 048
  9. SIMVASTATIN [Concomitant]
     Indication: HYPERCHOLESTEROLAEMIA
     Route: 048
  10. METOPROLOL TARTRATE [Concomitant]
     Indication: HYPERTENSION
     Route: 048
  11. LEVOTHYROXINE SODIUM [Concomitant]
     Indication: HYPOTHYROIDISM
     Route: 048
  12. TORASEMIDE [Concomitant]
     Indication: OEDEMA DUE TO CARDIAC DISEASE
     Route: 048
  13. CALCIUM CARBONATE [Concomitant]
     Indication: BLOOD CALCIUM DECREASED
     Route: 048
  14. LIPROLOG [Concomitant]
     Indication: DIABETES MELLITUS
     Route: 058

REACTIONS (1)
  - CARDIAC FAILURE [None]
